FAERS Safety Report 13705653 (Version 3)
Quarter: 2017Q4

REPORT INFORMATION
  Report Type: Spontaneous
  Country: FR (occurrence: FR)
  Receive Date: 20170630
  Receipt Date: 20171120
  Transmission Date: 20180320
  Serious: Yes (Death, Hospitalization, Other)
  Sender: FDA-Public Use
  Company Number: FR-ACTELION-A-CH2016-146084

PATIENT
  Age: 67 Year
  Sex: Female

DRUGS (7)
  1. TRACLEER [Concomitant]
     Active Substance: BOSENTAN
  2. REVATIO [Concomitant]
     Active Substance: SILDENAFIL CITRATE
  3. VELETRI [Suspect]
     Active Substance: EPOPROSTENOL
     Indication: PULMONARY ARTERIAL HYPERTENSION
     Dosage: UNK
     Route: 042
     Dates: start: 20161109, end: 201702
  4. TRIATEC [Concomitant]
     Active Substance: RAMIPRIL
  5. LASILIX [Concomitant]
     Active Substance: FUROSEMIDE
  6. EUPANTOL [Concomitant]
     Active Substance: PANTOPRAZOLE SODIUM
  7. CRESTOR [Concomitant]
     Active Substance: ROSUVASTATIN CALCIUM

REACTIONS (9)
  - Death [Fatal]
  - Localised infection [Unknown]
  - Catheter management [Unknown]
  - Purulent discharge [Unknown]
  - Erythema [Unknown]
  - Device related infection [Unknown]
  - Abscess [Unknown]
  - Skin warm [Unknown]
  - Acute kidney injury [Unknown]

NARRATIVE: CASE EVENT DATE: 20161115
